FAERS Safety Report 11074567 (Version 4)
Quarter: 2015Q3

REPORT INFORMATION
  Report Type: Report from Study
  Country: US (occurrence: US)
  Receive Date: 20150429
  Receipt Date: 20150807
  Transmission Date: 20151125
  Serious: Yes (Other)
  Sender: FDA-Public Use
  Company Number: US-BIOGENIDEC-2015BI054175

PATIENT
  Age: 35 Year
  Sex: Female
  Weight: 77 kg

DRUGS (9)
  1. XANAX [Concomitant]
     Active Substance: ALPRAZOLAM
  2. TYSABRI [Suspect]
     Active Substance: NATALIZUMAB
     Indication: MULTIPLE SCLEROSIS
  3. NEXA PLUS [Concomitant]
     Active Substance: ALPHA-TOCOPHEROL\ASCORBIC ACID\BIOTIN\CALCIUM\CHOLECALCIFEROL\CRYPTHECODINIUM COHNII DHA OIL\DOCUSATE CALCIUM\FOLIC ACID\IRON\PYRIDOXINE
  4. PEPCID AC [Concomitant]
     Active Substance: FAMOTIDINE
  5. CALCIUM AND VIT D [Concomitant]
     Active Substance: CALCIUM\VITAMIN D
  6. CALCIUM AND VIT D [Concomitant]
     Active Substance: CALCIUM\VITAMIN D
  7. VALACYCLOVIR [Concomitant]
     Active Substance: VALACYCLOVIR HYDROCHLORIDE
  8. WELLBUTRIN XL [Concomitant]
     Active Substance: BUPROPION HYDROCHLORIDE
  9. TYSABRI [Suspect]
     Active Substance: NATALIZUMAB
     Indication: MULTIPLE SCLEROSIS
     Route: 042
     Dates: start: 20061122, end: 20141006

REACTIONS (3)
  - HELLP syndrome [Recovered/Resolved]
  - Maternal exposure during pregnancy [Recovered/Resolved]
  - Postpartum depression [Unknown]

NARRATIVE: CASE EVENT DATE: 20140901
